FAERS Safety Report 6746831 (Version 2)
Quarter: 2014Q2

REPORT INFORMATION
  Report Type: Spontaneous
  Country: US (occurrence: US)
  Receive Date: 20080731
  Receipt Date: 20140510
  Transmission Date: 20141212
  Serious: No
  Sender: FDA-Public Use
  Company Number: US200806005605

PATIENT
  Age: 68 Year
  Sex: Male
  Weight: 100.68 kg

DRUGS (10)
  1. BYETTA PEN DISPOSABLE [Suspect]
     Indication: TYPE 2 DIABETES MELLITUS
     Dosage: 10MG LOT:A390949,A481924,C152585A?EXP:APR09,MAY09,MAY15?DOSING DATE: JUN08,MAY08?RESTD:19JAN14
     Route: 058
     Dates: start: 200805, end: 200806
  2. EXENATIDE 5MCG PEN, DISPOSABLE DEVICE [Concomitant]
  3. EXENATIDE 10MCG PEN, DISPOSABLE DEVICE [Concomitant]
  4. EXENATIDE 10MCG PEN, DISPOSABLE DEVICE [Concomitant]
  5. METFORMIN HCL [Suspect]
     Indication: TYPE 2 DIABETES MELLITUS
     Route: 048
  6. XANAX [Concomitant]
     Indication: PANIC ATTACK
     Route: 048
     Dates: start: 1992
  7. PAXIL [Concomitant]
     Indication: PANIC ATTACK
     Route: 048
     Dates: start: 1992
  8. LIPITOR [Concomitant]
     Indication: BLOOD CHOLESTEROL
     Route: 048
  9. ENALAPRIL [Concomitant]
     Indication: PROPHYLAXIS
     Route: 048
     Dates: start: 2007
  10. ASA [Concomitant]
     Indication: PROPHYLAXIS
     Route: 048

REACTIONS (8)
  - Blood glucose increased [Unknown]
  - Blood glucose abnormal [Not Recovered/Not Resolved]
  - Weight decreased [Unknown]
  - Decreased appetite [Not Recovered/Not Resolved]
  - Muscular weakness [Unknown]
  - Fatigue [Unknown]
  - Dizziness [Unknown]
  - Drug dose omission [Unknown]
